FAERS Safety Report 9308205 (Version 1)
Quarter: 2013Q2

REPORT INFORMATION
  Report Type: Spontaneous
  Country: US (occurrence: US)
  Receive Date: 20130523
  Receipt Date: 20130523
  Transmission Date: 20140414
  Serious: Yes (Other)
  Sender: FDA-Public Use
  Company Number: US-RB-054000-13

PATIENT
  Age: 34 Year
  Sex: Male

DRUGS (1)
  1. SUBOXONE FILM [Suspect]
     Indication: DRUG DEPENDENCE
     Dosage: SUBOXONE FILM; DOSING DETAILS UNKNOWN, WAS WEANED DOWN BY DOCTOR SEVERAL TIMES
     Route: 060
     Dates: start: 2011

REACTIONS (3)
  - Suicidal ideation [Not Recovered/Not Resolved]
  - Feeling cold [Not Recovered/Not Resolved]
  - Drug dependence [Not Recovered/Not Resolved]
